FAERS Safety Report 20557108 (Version 1)
Quarter: 2022Q1

REPORT INFORMATION
  Report Type: Other
  Country: US (occurrence: None)
  Receive Date: 20220307
  Receipt Date: 20220307
  Transmission Date: 20220423
  Serious: Yes (Hospitalization)
  Sender: FDA-Public Use
  Company Number: US-ROCHE-3040305

PATIENT
  Age: 62 Year
  Sex: Female

DRUGS (6)
  1. RITUXIMAB [Suspect]
     Active Substance: RITUXIMAB
     Indication: Cutaneous B-cell lymphoma
     Dosage: CYCLE 1 AND 2
     Route: 065
  2. ETOPOSIDE [Suspect]
     Active Substance: ETOPOSIDE
     Indication: Cutaneous B-cell lymphoma
     Dosage: CYCLE 1 AND 2
     Route: 065
  3. PREDNISONE [Suspect]
     Active Substance: PREDNISONE
     Indication: Cutaneous B-cell lymphoma
     Dosage: CYCLE 1 AND 2
     Route: 065
  4. VINCRISTINE [Suspect]
     Active Substance: VINCRISTINE
     Indication: Cutaneous B-cell lymphoma
     Dosage: CYCLE 1 AND 2
     Route: 065
  5. CYCLOPHOSPHAMIDE [Suspect]
     Active Substance: CYCLOPHOSPHAMIDE
     Indication: Cutaneous B-cell lymphoma
     Dosage: CYCLE 1 AND 2
     Route: 065
  6. DOXORUBICIN [Suspect]
     Active Substance: DOXORUBICIN
     Indication: Cutaneous B-cell lymphoma
     Dosage: CYCLE 1 AND 2
     Route: 065

REACTIONS (3)
  - Disease progression [Unknown]
  - Febrile neutropenia [Unknown]
  - Drug ineffective [Unknown]
